FAERS Safety Report 11260623 (Version 1)
Quarter: 2015Q3

REPORT INFORMATION
  Report Type: Spontaneous
  Country: CN (occurrence: CN)
  Receive Date: 20150710
  Receipt Date: 20150710
  Transmission Date: 20151125
  Serious: Yes (Life-Threatening, Hospitalization)
  Sender: FDA-Public Use
  Company Number: CN-BAYER-2015-371357

PATIENT
  Age: 76 Year
  Sex: Male
  Weight: 65 kg

DRUGS (9)
  1. TRIMETAZIDINE HYDROCHLORIDE [Concomitant]
     Active Substance: TRIMETAZIDINE DIHYDROCHLORIDE
     Indication: PRODUCT USED FOR UNKNOWN INDICATION
     Dosage: 20 MG, TID
     Route: 048
     Dates: start: 20150308, end: 20150309
  2. COENZYME COMPLEX [Concomitant]
     Active Substance: UNSPECIFIED INGREDIENT
     Indication: ANGINA PECTORIS
     Dosage: 2 DF, QD
     Route: 042
     Dates: start: 20150307, end: 20150309
  3. CRESTOR [Concomitant]
     Active Substance: ROSUVASTATIN CALCIUM
     Indication: COAGULOPATHY
     Dosage: 10 MG, QD
     Route: 048
     Dates: start: 20150308, end: 20150309
  4. CREATINE PHOSPHATE [Concomitant]
     Indication: GASTRIC DISORDER
     Dosage: 2 G, QD
     Route: 042
     Dates: start: 20150307, end: 20150309
  5. CLOPIDOGREL SULFATE [Suspect]
     Active Substance: CLOPIDOGREL BISULFATE
     Indication: PRODUCT USED FOR UNKNOWN INDICATION
     Dosage: 75 MG, QD
     Route: 048
     Dates: start: 20150308, end: 20150309
  6. BETALOC [Concomitant]
     Active Substance: METOPROLOL TARTRATE
     Indication: LIPIDOSIS
     Dosage: 23.75 MG, QD
     Route: 048
     Dates: start: 20150308, end: 20150309
  7. NORVASC [Concomitant]
     Active Substance: AMLODIPINE BESYLATE
     Indication: COAGULOPATHY
     Dosage: 5 MG, QD
     Route: 048
     Dates: start: 20150308, end: 20150309
  8. PANTOPRAZOLE SODIUM. [Concomitant]
     Active Substance: PANTOPRAZOLE SODIUM
     Indication: HYPERTENSION
     Dosage: 40 MG, QD
     Route: 048
     Dates: start: 20150308, end: 20150309
  9. BAYASPIRIN [Suspect]
     Active Substance: ASPIRIN
     Indication: HYPERTENSION
     Dosage: 100 MG, QD
     Route: 048
     Dates: start: 20150308, end: 20150309

REACTIONS (3)
  - Headache [Recovering/Resolving]
  - Chills [Recovering/Resolving]
  - Cerebral haemorrhage [Recovering/Resolving]

NARRATIVE: CASE EVENT DATE: 20150310
